FAERS Safety Report 5888451-X (Version None)
Quarter: 2008Q3

REPORT INFORMATION
  Report Type: 
  Country: None (occurrence: None)
  Receive Date: 20080918
  Receipt Date: 20080910
  Transmission Date: 20090109
  Serious: Yes (Other)
  Sender: FDA-Public Use
  Company Number: GB-PFIZER INC-2008076740

PATIENT
  Sex: Female

DRUGS (1)
  1. AMLODIPINE [Suspect]
     Indication: HYPERTENSION

REACTIONS (2)
  - OEDEMA PERIPHERAL [None]
  - URGE INCONTINENCE [None]
